FAERS Safety Report 18617410 (Version 1)
Quarter: 2020Q4

REPORT INFORMATION
  Report Type: Spontaneous
  Country: JP (occurrence: JP)
  Receive Date: 20201215
  Receipt Date: 20201215
  Transmission Date: 20210114
  Serious: Yes (Other)
  Sender: FDA-Public Use
  Company Number: NVSJ2020JP013555

PATIENT
  Age: 68 Year
  Sex: Female

DRUGS (2)
  1. COSENTYX [Suspect]
     Active Substance: SECUKINUMAB
     Indication: PSORIATIC ARTHROPATHY
     Dosage: 300 MG, QW, ADMINISTER 5 TIMES
     Route: 058
     Dates: start: 20201012
  2. ELIQUIS [Concomitant]
     Active Substance: APIXABAN
     Indication: CEREBRAL INFARCTION
     Dosage: UNK
     Route: 048

REACTIONS (3)
  - Toxic skin eruption [Recovering/Resolving]
  - Erythema [Recovering/Resolving]
  - Pruritus [Recovering/Resolving]

NARRATIVE: CASE EVENT DATE: 20201116
